FAERS Safety Report 6423003-4 (Version None)
Quarter: 2009Q4

REPORT INFORMATION
  Report Type: 
  Country: None (occurrence: None)
  Receive Date: 20091028
  Receipt Date: 20091016
  Transmission Date: 20100525
  Serious: Yes (Death, Hospitalization)
  Sender: FDA-Public Use
  Company Number: SPV1-2009-02053

PATIENT
  Age: 23 Year
  Sex: Male

DRUGS (1)
  1. ELAPRASE [Suspect]
     Indication: MUCOPOLYSACCHARIDOSIS II
     Dosage: IV DRIP
     Route: 041
     Dates: start: 20061107

REACTIONS (2)
  - NO THERAPEUTIC RESPONSE [None]
  - PNEUMONIA [None]
